FAERS Safety Report 9175027 (Version 2)
Quarter: 2013Q2

REPORT INFORMATION
  Report Type: Report from Study
  Country: FR (occurrence: FR)
  Receive Date: 20130320
  Receipt Date: 20130417
  Transmission Date: 20140414
  Serious: Yes (Hospitalization)
  Sender: FDA-Public Use
  Company Number: FR-GLAXOSMITHKLINE-B0876182A

PATIENT
  Age: 55 Year
  Sex: Female
  Weight: 59 kg

DRUGS (9)
  1. TOPOTECAN HYDROCHLORIDE [Suspect]
     Indication: OVARIAN CANCER
     Route: 042
     Dates: start: 20130122
  2. PERTUZUMAB [Suspect]
     Indication: OVARIAN CANCER
     Route: 042
     Dates: start: 20130122
  3. INNOHEP [Concomitant]
     Dosage: 1000IU PER DAY
     Dates: start: 20121217
  4. PANCREATINE [Concomitant]
     Dosage: 20MG PER DAY
     Dates: start: 20120411
  5. INOSINE [Concomitant]
     Dosage: 40MG PER DAY
     Dates: start: 201006
  6. ALPRAZOLAM [Concomitant]
     Dosage: .5MG PER DAY
     Dates: start: 20121221
  7. SKENAN LP [Concomitant]
     Dosage: 30MG PER DAY
     Dates: start: 20121221
  8. ACTISKENAN [Concomitant]
     Dosage: 10MG PER DAY
     Dates: start: 20121221
  9. EFFERALGAN [Concomitant]
     Dosage: 500MG PER DAY
     Dates: start: 201211

REACTIONS (1)
  - Hypokalaemia [Recovered/Resolved]
